FAERS Safety Report 5512487-1 (Version None)
Quarter: 2007Q4

REPORT INFORMATION
  Report Type: 
  Country: None (occurrence: None)
  Receive Date: 20071112
  Receipt Date: 20070516
  Transmission Date: 20080405
  Serious: No
  Sender: FDA-Public Use
  Company Number: A0651610A

PATIENT
  Sex: Female

DRUGS (5)
  1. AVANDAMET [Suspect]
     Route: 048
  2. DIOVAN [Concomitant]
  3. HYDROXYUREA [Concomitant]
  4. SENOKOT [Concomitant]
  5. FERROUS SULFATE TAB [Concomitant]

REACTIONS (6)
  - COUGH [None]
  - DIARRHOEA [None]
  - MUSCLE SPASMS [None]
  - NAUSEA [None]
  - SWELLING [None]
  - WEIGHT INCREASED [None]
